FAERS Safety Report 8283808-4 (Version None)
Quarter: 2012Q2

REPORT INFORMATION
  Report Type: 
  Country: None (occurrence: None)
  Receive Date: 20120413
  Receipt Date: 20111213
  Transmission Date: 20120825
  Serious: No
  Sender: FDA-Public Use
  Company Number: US-ASTRAZENECA-2011SE47416

PATIENT
  Age: 52 Year
  Sex: Female

DRUGS (1)
  1. NEXIUM [Suspect]
     Route: 048

REACTIONS (8)
  - PAIN [None]
  - MALAISE [None]
  - CHEST DISCOMFORT [None]
  - CARDIAC FAILURE CONGESTIVE [None]
  - GOUT [None]
  - FALL [None]
  - WEIGHT DECREASED [None]
  - INTERVERTEBRAL DISC DEGENERATION [None]
